FAERS Safety Report 19190935 (Version 1)
Quarter: 2021Q2

REPORT INFORMATION
  Report Type: Spontaneous
  Country: DE (occurrence: JP)
  Receive Date: 20210428
  Receipt Date: 20210428
  Transmission Date: 20210717
  Serious: Yes (Other)
  Sender: FDA-Public Use
  Company Number: JP-ELI_LILLY_AND_COMPANY-JP202104011532

PATIENT
  Age: 79 Year
  Sex: Male

DRUGS (5)
  1. BINIMETINIB [Concomitant]
     Active Substance: BINIMETINIB
     Indication: RECTAL CANCER
     Dosage: UNK
     Dates: start: 20210225
  2. POLARAMINE [Concomitant]
     Active Substance: DEXCHLORPHENIRAMINE MALEATE
     Indication: PROPHYLAXIS
     Dosage: 5 MG, WEEKLY (1/W)
     Route: 041
     Dates: start: 20210225
  3. ENCORAFENIB [Concomitant]
     Active Substance: ENCORAFENIB
     Indication: RECTAL CANCER
     Dosage: UNK
     Dates: start: 20210225
  4. DEXAMETHASONE. [Concomitant]
     Active Substance: DEXAMETHASONE
     Indication: PROPHYLAXIS
     Dosage: 6.6 MG, WEEKLY (1/W)
     Route: 041
     Dates: start: 20210225
  5. ERBITUX [Suspect]
     Active Substance: CETUXIMAB
     Indication: RECTAL CANCER
     Dosage: 250 MG, WEEKLY (1/W)
     Route: 041
     Dates: start: 20210225

REACTIONS (1)
  - Eye disorder [Unknown]

NARRATIVE: CASE EVENT DATE: 202103
